FAERS Safety Report 7912206-5 (Version None)
Quarter: 2011Q4

REPORT INFORMATION
  Report Type: 
  Country: None (occurrence: None)
  Receive Date: 20111114
  Receipt Date: 20111107
  Transmission Date: 20120403
  Serious: Yes (Hospitalization)
  Sender: FDA-Public Use
  Company Number: US-GILEAD-2011-0046425

PATIENT
  Sex: Male

DRUGS (14)
  1. KLOR-CON [Concomitant]
  2. LETAIRIS [Suspect]
     Indication: RENAL FAILURE CHRONIC
  3. LETAIRIS [Suspect]
     Indication: ANAEMIA
  4. LETAIRIS [Suspect]
     Indication: FLUID OVERLOAD
  5. SILDENAFIL [Concomitant]
  6. RIFAXIMIN [Concomitant]
  7. LACTULOSE [Concomitant]
  8. LETAIRIS [Suspect]
     Indication: MALNUTRITION
  9. SPIRONOLACTONE [Suspect]
     Dosage: 100 MG, UNK
     Route: 048
     Dates: start: 20111004
  10. THIAMINE HCL [Concomitant]
  11. LETAIRIS [Suspect]
     Indication: PORTOPULMONARY HYPERTENSION
     Dosage: 10 MG, UNK
     Route: 048
     Dates: start: 20111002, end: 20111006
  12. OMEPRAZOLE [Concomitant]
  13. PROPRANOLOL [Concomitant]
  14. ASCORBIC ACID [Concomitant]

REACTIONS (8)
  - COUGH [None]
  - SWELLING FACE [None]
  - FACIAL PAIN [None]
  - CONTUSION [None]
  - DYSPNOEA [None]
  - ERYTHEMA [None]
  - FLUSHING [None]
  - HEADACHE [None]
